FAERS Safety Report 15925037 (Version 1)
Quarter: 2019Q1

REPORT INFORMATION
  Report Type: Spontaneous
  Country: US (occurrence: US)
  Receive Date: 20190206
  Receipt Date: 20190206
  Transmission Date: 20190417
  Serious: Yes (Hospitalization)
  Sender: FDA-Public Use
  Company Number: None

PATIENT
  Age: 57 Year
  Sex: Female
  Weight: 100 kg

DRUGS (1)
  1. LAMOTRIGINE. [Suspect]
     Active Substance: LAMOTRIGINE
     Indication: NEUROPATHY PERIPHERAL
     Route: 048
     Dates: start: 20180901, end: 20181124

REACTIONS (6)
  - Fatigue [None]
  - Drug eruption [None]
  - Streptococcus test positive [None]
  - Rash [None]
  - Pyrexia [None]
  - Asthenia [None]

NARRATIVE: CASE EVENT DATE: 20181124
